FAERS Safety Report 20757436 (Version 2)
Quarter: 2022Q2

REPORT INFORMATION
  Report Type: Report from Study
  Country: CA (occurrence: CA)
  Receive Date: 20220427
  Receipt Date: 20220505
  Transmission Date: 20220721
  Serious: Yes (Other)
  Sender: FDA-Public Use
  Company Number: CA-OTSUKA-2021_042893

PATIENT
  Sex: Male

DRUGS (2)
  1. CEDAZURIDINE\DECITABINE [Suspect]
     Active Substance: CEDAZURIDINE\DECITABINE
     Indication: Chronic myelomonocytic leukaemia
     Dosage: UNK (35 MG DECITABINE AND 100 MG CEDAZURIDINE) (5 TABLETS PER CYCLE), CYCLE 1
     Route: 048
     Dates: start: 20211115
  2. CEDAZURIDINE\DECITABINE [Suspect]
     Active Substance: CEDAZURIDINE\DECITABINE
     Dosage: (35 MG DECITABINE AND 100 MG CEDAZURIDINE) (4 TABLETS PER CYCLE) CYCLE 2
     Route: 048

REACTIONS (7)
  - Red blood cell transfusion [Unknown]
  - Pancytopenia [Unknown]
  - Platelet count decreased [Unknown]
  - General physical health deterioration [Unknown]
  - Eastern Cooperative Oncology Group performance status worsened [Unknown]
  - Full blood count abnormal [Unknown]
  - Therapy interrupted [Unknown]
